FAERS Safety Report 7777518-7 (Version None)
Quarter: 2011Q3

REPORT INFORMATION
  Report Type: 
  Country: None (occurrence: None)
  Receive Date: 20110922
  Receipt Date: 20110906
  Transmission Date: 20111222
  Serious: Yes (Other)
  Sender: FDA-Public Use
  Company Number: FK201101951

PATIENT
  Sex: Female

DRUGS (5)
  1. CANDESARTAN CILEXETIL [Concomitant]
  2. BEVACIZUMAB (BEVACIZUMAB)(BEVACIZUMAB) [Suspect]
     Indication: BREAST CANCER METASTATIC
     Dosage: 10 MG/KG, 1 IN 2 WK
  3. HYDROCHLOROTHIAZIDE [Concomitant]
  4. PACLITAXEL [Suspect]
     Indication: BREAST CANCER METASTATIC
     Dosage: 80 MG/M2, ON DAYS 1, 8 AND 15 OF A 28-DAY CYCLE
  5. METOPROLOL SUCCINATE [Concomitant]

REACTIONS (6)
  - BLOOD PRESSURE INCREASED [None]
  - CUTANEOUS LUPUS ERYTHEMATOSUS [None]
  - RASH PRURITIC [None]
  - RASH PAPULOSQUAMOUS [None]
  - DERMATITIS [None]
  - ANTINUCLEAR ANTIBODY POSITIVE [None]
